FAERS Safety Report 13367154 (Version 2)
Quarter: 2017Q1

REPORT INFORMATION
  Report Type: Report from Study
  Country: None (occurrence: US)
  Receive Date: 20170324
  Receipt Date: 20170330
  Transmission Date: 20170429
  Serious: Yes (Hospitalization, Other)
  Sender: FDA-Public Use
  Company Number: US-ABBVIE-17K-163-1914820-00

PATIENT
  Age: 56 Year
  Sex: Male
  Weight: 93.98 kg

DRUGS (1)
  1. HUMIRA [Suspect]
     Active Substance: ADALIMUMAB
     Indication: PSORIASIS
     Route: 058
     Dates: start: 2002

REACTIONS (21)
  - Vomiting [Recovered/Resolved]
  - Back pain [Recovered/Resolved]
  - Weight decreased [Recovered/Resolved]
  - Peripheral swelling [Recovered/Resolved]
  - Myocardial infarction [Recovered/Resolved]
  - Catheter site pain [Recovered/Resolved]
  - Incision site pain [Recovered/Resolved]
  - Psoriasis [Not Recovered/Not Resolved]
  - Psoriasis [Not Recovered/Not Resolved]
  - Procedural haemorrhage [Recovered/Resolved]
  - Dyspnoea [Recovered/Resolved]
  - Urinary tract infection [Recovered/Resolved]
  - Pain [Recovered/Resolved]
  - Dyspnoea exertional [Recovered/Resolved]
  - Nosocomial infection [Recovered/Resolved]
  - Post procedural swelling [Recovered/Resolved]
  - Vascular stent occlusion [Recovered/Resolved]
  - Paraesthesia [Recovered/Resolved]
  - Pain [Recovered/Resolved]
  - Cartilage atrophy [Not Recovered/Not Resolved]
  - Neck pain [Recovered/Resolved]

NARRATIVE: CASE EVENT DATE: 2012
